FAERS Safety Report 7514793-8 (Version None)
Quarter: 2011Q2

REPORT INFORMATION
  Report Type: 
  Country: None (occurrence: None)
  Receive Date: 20110422
  Receipt Date: 20100521
  Transmission Date: 20111010
  Serious: Yes (Hospitalization)
  Sender: FDA-Public Use
  Company Number: WAES 1005USA03562

PATIENT
  Age: 45 Year
  Sex: Female

DRUGS (2)
  1. SINGULAIR [Suspect]
     Indication: HYPERSENSITIVITY
     Dosage: 2.5 MG/DAILY/PO, PO
     Route: 048
     Dates: start: 20090317
  2. SINGULAIR [Suspect]
     Indication: HYPERSENSITIVITY
     Dosage: 2.5 MG/DAILY/PO, PO
     Route: 048

REACTIONS (11)
  - DISTURBANCE IN ATTENTION [None]
  - ABDOMINAL PAIN [None]
  - PAIN [None]
  - ANXIETY [None]
  - NIGHTMARE [None]
  - PALPITATIONS [None]
  - CHEST DISCOMFORT [None]
  - INSOMNIA [None]
  - DEPRESSION [None]
  - FATIGUE [None]
  - TINNITUS [None]
